FAERS Safety Report 23499562 (Version 1)
Quarter: 2024Q1

REPORT INFORMATION
  Report Type: Other
  Country: NZ (occurrence: NZ)
  Receive Date: 20240208
  Receipt Date: 20240208
  Transmission Date: 20240410
  Serious: Yes (Other)
  Sender: FDA-Public Use
  Company Number: NZ-TASMAN PHARMA, INC.-2024TSM00032

PATIENT
  Age: 70 Year
  Sex: Female

DRUGS (5)
  1. CLOZAPINE [Suspect]
     Active Substance: CLOZAPINE
  2. RIVAROXABAN [Concomitant]
     Active Substance: RIVAROXABAN
  3. AMISULPRIDE [Concomitant]
     Active Substance: AMISULPRIDE
  4. BUDESONIDE [Concomitant]
     Active Substance: BUDESONIDE
  5. ATORVASTATIN [Concomitant]
     Active Substance: ATORVASTATIN

REACTIONS (2)
  - Respiratory failure [Unknown]
  - Chronic obstructive pulmonary disease [Unknown]
